FAERS Safety Report 11292048 (Version 3)
Quarter: 2015Q3

REPORT INFORMATION
  Report Type: Spontaneous
  Country: US (occurrence: US)
  Receive Date: 20150722
  Receipt Date: 20150918
  Transmission Date: 20151125
  Serious: Yes (Other)
  Sender: FDA-Public Use
  Company Number: US-PFIZER INC-2015182286

PATIENT
  Age: 49 Year
  Sex: Female
  Weight: 127 kg

DRUGS (4)
  1. EFFEXOR [Suspect]
     Active Substance: VENLAFAXINE HYDROCHLORIDE
  2. LYRICA [Suspect]
     Active Substance: PREGABALIN
     Indication: SLEEP DISORDER
  3. LYRICA [Suspect]
     Active Substance: PREGABALIN
     Indication: NEUROPATHY PERIPHERAL
     Dosage: 50 MG, 2X/DAY
     Route: 048
     Dates: start: 201504
  4. LYRICA [Suspect]
     Active Substance: PREGABALIN
     Indication: PERIPHERAL SWELLING

REACTIONS (11)
  - Back disorder [Unknown]
  - Somnolence [Unknown]
  - Hepatic neoplasm [Unknown]
  - Lung neoplasm [Unknown]
  - Disease progression [Unknown]
  - Renal neoplasm [Unknown]
  - Peripheral swelling [Unknown]
  - Plasma cell myeloma [Unknown]
  - Drug ineffective for unapproved indication [Unknown]
  - Mass [Unknown]
  - Back pain [Unknown]
